FAERS Safety Report 21094957 (Version 1)
Quarter: 2022Q3

REPORT INFORMATION
  Report Type: Spontaneous
  Country: US (occurrence: None)
  Receive Date: 20220715
  Receipt Date: 20220715
  Transmission Date: 20221027
  Serious: Yes (Other)
  Sender: FDA-Public Use
  Company Number: None

PATIENT
  Sex: Female

DRUGS (1)
  1. MAGNESIUM CITRATE LEMON [Suspect]
     Active Substance: MAGNESIUM CITRATE

REACTIONS (4)
  - Recalled product administered [None]
  - Malaise [None]
  - Constipation [None]
  - Product taste abnormal [None]

NARRATIVE: CASE EVENT DATE: 20220711
